FAERS Safety Report 13037211 (Version 1)
Quarter: 2016Q4

REPORT INFORMATION
  Report Type: Not Available
  Country: None (occurrence: US)
  Receive Date: 20161216
  Receipt Date: 20161216
  Transmission Date: 20170207
  Serious: No
  Sender: FDA-Public Use
  Company Number: US-AKORN-45343

PATIENT
  Sex: Female

DRUGS (1)
  1. LATANOPROST 0.005 % OPHTHALMIC SOLUTION [Suspect]
     Active Substance: LATANOPROST

REACTIONS (2)
  - Eye irritation [Recovered/Resolved]
  - Intraocular pressure increased [Recovered/Resolved]
